FAERS Safety Report 13365410 (Version 1)
Quarter: 2017Q1

REPORT INFORMATION
  Report Type: Spontaneous
  Country: US (occurrence: US)
  Receive Date: 20170323
  Receipt Date: 20170323
  Transmission Date: 20170429
  Serious: No
  Sender: FDA-Public Use
  Company Number: US-ALLERGAN-2016-000291

PATIENT
  Age: 83 Year
  Sex: Female

DRUGS (2)
  1. PROGESTOGENS AND ESTROGENS IN COMBINATION [Concomitant]
  2. ESTRACE [Suspect]
     Active Substance: ESTRADIOL
     Dosage: UNK, UNKNOWN
     Route: 061
     Dates: start: 201509

REACTIONS (2)
  - Product use issue [Unknown]
  - Vaginal haemorrhage [Not Recovered/Not Resolved]
